FAERS Safety Report 8802192 (Version 1)
Quarter: 2012Q4

REPORT INFORMATION
  Report Type: 
  Country: US (occurrence: US)
  Receive Date: 20120921
  Receipt Date: 20120921
  Transmission Date: 20130627
  Serious: No
  Sender: FDA-Public Use
  Company Number: US-009507513-1209USA002355

PATIENT
  Age: 37 Year
  Sex: Female
  Weight: 67.57 kg

DRUGS (3)
  1. IMPLANON [Suspect]
     Indication: CONTRACEPTION
     Dosage: 3 years
     Route: 059
     Dates: start: 20120420
  2. HYDROCODONE [Concomitant]
  3. PROMETHAZINE HYDROCHLORIDE [Concomitant]

REACTIONS (1)
  - Amenorrhoea [Unknown]
